FAERS Safety Report 17920423 (Version 1)
Quarter: 2020Q2

REPORT INFORMATION
  Report Type: Spontaneous
  Country: US (occurrence: US)
  Receive Date: 20200620
  Receipt Date: 20200620
  Transmission Date: 20200714
  Serious: Yes (Hospitalization)
  Sender: FDA-Public Use
  Company Number: NVSC2020US169531

PATIENT
  Age: 9 Year
  Sex: Male
  Weight: 30 kg

DRUGS (10)
  1. TOPOTECAN HYDROCHLORIDE. [Suspect]
     Active Substance: TOPOTECAN HYDROCHLORIDE
     Dosage: 0.75 MG/M2
     Route: 065
     Dates: start: 20191017
  2. CYCLOPHOSPHAMIDE. [Suspect]
     Active Substance: CYCLOPHOSPHAMIDE
     Indication: NEUROBLASTOMA
     Dosage: UNK (1-5 MG)
     Route: 065
     Dates: start: 20191017
  3. VENETOCLAX. [Suspect]
     Active Substance: VENETOCLAX
     Indication: REFRACTORY CANCER
     Dosage: 120 MG
     Route: 065
     Dates: start: 20190924
  4. ALLOPURINOL. [Concomitant]
     Active Substance: ALLOPURINOL
     Indication: PROPHYLAXIS
     Dosage: 100 MG
     Route: 065
     Dates: start: 20190924, end: 20190926
  5. CYCLOPHOSPHAMIDE. [Suspect]
     Active Substance: CYCLOPHOSPHAMIDE
     Indication: REFRACTORY CANCER
     Dosage: UNK
     Route: 065
     Dates: start: 20150703
  6. DEXTROSE. [Concomitant]
     Active Substance: DEXTROSE
     Indication: PROPHYLAXIS
     Dosage: 1000 ML
     Route: 042
     Dates: start: 20190923, end: 20190927
  7. TOPOTECAN HYDROCHLORIDE. [Suspect]
     Active Substance: TOPOTECAN HYDROCHLORIDE
     Indication: PRODUCT USED FOR UNKNOWN INDICATION
     Dosage: 0.75 MG (1-5 DAYS)
     Route: 065
     Dates: start: 20190926, end: 20190930
  8. SULFAMETHOXAZOLE [Concomitant]
     Active Substance: SULFAMETHOXAZOLE
     Indication: PROPHYLAXIS
     Dosage: 10 ML (ON MON, TUES, WED 10 ML 2 IN ONE DAY)
     Route: 048
     Dates: start: 20190927
  9. ONDANSETRON [Concomitant]
     Active Substance: ONDANSETRON
     Indication: PROPHYLAXIS OF NAUSEA AND VOMITING
     Dosage: 4 MG (AS REQUIRED)
     Route: 048
     Dates: start: 20190927
  10. VENETOCLAX. [Suspect]
     Active Substance: VENETOCLAX
     Dosage: 250 MG, QD
     Route: 065
     Dates: start: 20191026

REACTIONS (3)
  - Febrile neutropenia [Recovered/Resolved]
  - Hyperhidrosis [Recovered/Resolved]
  - Pyrexia [Recovered/Resolved]

NARRATIVE: CASE EVENT DATE: 20191025
